FAERS Safety Report 12954353 (Version 2)
Quarter: 2016Q4

REPORT INFORMATION
  Report Type: Spontaneous
  Country: AU (occurrence: AU)
  Receive Date: 20161118
  Receipt Date: 20161222
  Transmission Date: 20170207
  Serious: Yes (Hospitalization)
  Sender: FDA-Public Use
  Company Number: AU-ACTELION-A-CH2016-145453

PATIENT
  Age: 26 Year
  Sex: Male

DRUGS (2)
  1. ZAVESCA [Suspect]
     Active Substance: MIGLUSTAT
     Indication: NIEMANN-PICK DISEASE
     Dosage: 200 MG, TID
     Route: 048
     Dates: start: 20080724
  2. VALPROATE [Concomitant]
     Active Substance: VALPROIC ACID
     Indication: SEIZURE
     Dosage: 500 MG, BID
     Route: 048
     Dates: start: 2009

REACTIONS (7)
  - Coma scale abnormal [Recovered/Resolved]
  - Cardiac tamponade [Recovered/Resolved]
  - Pericardial excision [Recovered/Resolved]
  - Pericardial effusion [Recovered/Resolved]
  - Pneumonia aspiration [Unknown]
  - Dyspnoea [Recovered/Resolved]
  - Pericarditis [Recovered/Resolved]

NARRATIVE: CASE EVENT DATE: 20161021
